FAERS Safety Report 6259285-1 (Version None)
Quarter: 2009Q3

REPORT INFORMATION
  Report Type: 
  Country: None (occurrence: None)
  Receive Date: 20090702
  Receipt Date: 20090626
  Transmission Date: 20100115
  Serious: Yes (Other)
  Sender: FDA-Public Use
  Company Number: 310699

PATIENT
  Age: 76 Year
  Sex: Male

DRUGS (2)
  1. VANCOMYCIN [Suspect]
     Indication: STAPHYLOCOCCAL BACTERAEMIA
  2. (CHEMOTHERAPEUTTCS NOS) [Concomitant]

REACTIONS (4)
  - DRUG LEVEL INCREASED [None]
  - HAEMODIALYSIS [None]
  - LINEAR IGA DISEASE [None]
  - RENAL FAILURE [None]
